FAERS Safety Report 4272626-X (Version None)
Quarter: 2004Q1

REPORT INFORMATION
  Report Type: 
  Country: None (occurrence: None)
  Receive Date: 20040114
  Receipt Date: 20040114
  Transmission Date: 20041129
  Serious: Yes (Other)
  Sender: FDA-Public Use
  Company Number: None

PATIENT
  Sex: Female
  Weight: 40.8237 kg

DRUGS (14)
  1. MUCINEX [Suspect]
     Indication: EMPHYSEMA
     Dosage: 600 MG BID ORAL
     Route: 048
     Dates: start: 20031015
  2. SYNTHROID [Concomitant]
  3. VERAPAMIL [Concomitant]
  4. COMBIVENT [Concomitant]
  5. SEREVENT [Concomitant]
  6. FLOVENT [Concomitant]
  7. FLONASE [Concomitant]
  8. ERYTHROMYCIN [Concomitant]
  9. AMOXICILLIN [Concomitant]
  10. ALLEGRA [Concomitant]
  11. NASALCROM [Concomitant]
  12. ENTSOL [Concomitant]
  13. MUTLIVITAMINS [Concomitant]
  14. SINGULAIR [Concomitant]

REACTIONS (8)
  - ABNORMAL BEHAVIOUR [None]
  - AMNESIA [None]
  - ANXIETY [None]
  - ASTHENIA [None]
  - MUCOUS MEMBRANE DISORDER [None]
  - SCAB [None]
  - SOMNOLENCE [None]
  - SPEECH DISORDER [None]
